FAERS Safety Report 6900739-X (Version None)
Quarter: 2010Q3

REPORT INFORMATION
  Report Type: 
  Country: None (occurrence: None)
  Receive Date: 20100803
  Receipt Date: 20100729
  Transmission Date: 20110219
  Serious: Yes (Hospitalization)
  Sender: FDA-Public Use
  Company Number: IT-JNJFOC-20100709159

PATIENT
  Sex: Female

DRUGS (6)
  1. LEVOXACIN [Suspect]
     Indication: HYPERPYREXIA
     Route: 042
  2. EUTIROX [Concomitant]
     Route: 065
  3. ASPIRIN [Concomitant]
     Route: 065
  4. TALOFEN [Concomitant]
     Route: 065
  5. ESTAZOLAM [Concomitant]
     Route: 065
  6. NITROGLYCERIN [Concomitant]
     Route: 065

REACTIONS (2)
  - DIPLOPIA [None]
  - MALAISE [None]
